FAERS Safety Report 11102374 (Version 6)
Quarter: 2018Q1

REPORT INFORMATION
  Report Type: Spontaneous
  Country: JP (occurrence: JP)
  Receive Date: 20150511
  Receipt Date: 20180111
  Transmission Date: 20180508
  Serious: Yes (Death, Hospitalization)
  Sender: FDA-Public Use
  Company Number: JP-JNJFOC-20150321592

PATIENT
  Age: 83 Year
  Sex: Male

DRUGS (17)
  1. GASTER [Concomitant]
     Active Substance: FAMOTIDINE
     Route: 048
     Dates: start: 20130323, end: 20150328
  2. OXYCONTIN [Concomitant]
     Active Substance: OXYCODONE HYDROCHLORIDE
     Indication: METASTASES TO BONE
     Route: 048
     Dates: start: 20130427, end: 20150328
  3. ALFAROL [Concomitant]
     Active Substance: ALFACALCIDOL
     Route: 048
     Dates: start: 20130403, end: 20150328
  4. LAXOBERON [Concomitant]
     Active Substance: SODIUM PICOSULFATE
     Route: 048
     Dates: start: 20130416, end: 20150328
  5. ASPARA-CA [Concomitant]
     Active Substance: CALCIUM ASPARTATE
     Route: 048
     Dates: start: 20140403, end: 20150328
  6. TAMSULOSIN HYDROCHLORIDE. [Concomitant]
     Active Substance: TAMSULOSIN HYDROCHLORIDE
     Route: 048
     Dates: start: 20140326, end: 20150328
  7. HALCION [Concomitant]
     Active Substance: TRIAZOLAM
     Route: 048
     Dates: end: 20150328
  8. SELTOUCH [Concomitant]
     Active Substance: FELBINAC
     Route: 062
     Dates: start: 20131213, end: 20150328
  9. URSO [Concomitant]
     Active Substance: URSODIOL
     Route: 048
     Dates: end: 20150328
  10. RANMARK [Concomitant]
     Active Substance: DENOSUMAB
     Indication: METASTASES TO BONE
     Route: 058
     Dates: start: 20130322, end: 20150320
  11. BLOPRESS [Concomitant]
     Active Substance: CANDESARTAN CILEXETIL
     Route: 048
     Dates: end: 20150328
  12. NIFEDIPINE. [Concomitant]
     Active Substance: NIFEDIPINE
     Route: 048
     Dates: end: 20150328
  13. GONAX [Suspect]
     Active Substance: DEGARELIX
     Indication: PROSTATE CANCER
     Route: 058
  14. DECADRON [Concomitant]
     Active Substance: DEXAMETHASONE
     Indication: HORMONE-REFRACTORY PROSTATE CANCER
     Route: 048
     Dates: start: 20081121, end: 20150328
  15. TAKEPRON [Concomitant]
     Active Substance: LANSOPRAZOLE
     Route: 048
     Dates: end: 20150328
  16. ZYTIGA [Suspect]
     Active Substance: ABIRATERONE ACETATE
     Indication: HORMONE-REFRACTORY PROSTATE CANCER
     Route: 048
     Dates: start: 20141018, end: 20150328
  17. MAGLAX [Concomitant]
     Active Substance: MAGNESIUM OXIDE
     Route: 048
     Dates: start: 20140326, end: 20150328

REACTIONS (4)
  - Prostate cancer [Unknown]
  - Sepsis [Fatal]
  - Vomiting [Unknown]
  - Blood testosterone increased [Not Recovered/Not Resolved]

NARRATIVE: CASE EVENT DATE: 20141023
